FAERS Safety Report 20622879 (Version 1)
Quarter: 2022Q1

REPORT INFORMATION
  Report Type: Spontaneous
  Country: CA (occurrence: CA)
  Receive Date: 20220322
  Receipt Date: 20220322
  Transmission Date: 20220424
  Serious: Yes (Other)
  Sender: FDA-Public Use
  Company Number: CA-BAXTER-2022BAX001729

PATIENT
  Age: 35 Year
  Sex: Female

DRUGS (4)
  1. BUPIVACAINE\DEXTROSE [Suspect]
     Active Substance: BUPIVACAINE\DEXTROSE
     Indication: Caesarean section
     Dosage: ROUTE: SPINAL?THERAPY DURATION:1 DOSE
     Route: 008
     Dates: start: 20220118, end: 20220118
  2. BUPIVACAINE\DEXTROSE [Suspect]
     Active Substance: BUPIVACAINE\DEXTROSE
     Indication: Anaesthesia procedure
     Dosage: DIFFERENT LOT, 1 DOSE, DOSE INCREASED
     Route: 008
     Dates: start: 20220118
  3. FENTANYL [Suspect]
     Active Substance: FENTANYL
     Indication: Anaesthesia procedure
     Route: 065
     Dates: start: 20220118
  4. MORPHINE SULFATE [Suspect]
     Active Substance: MORPHINE SULFATE
     Indication: Anaesthesia procedure
     Route: 065
     Dates: start: 20220118

REACTIONS (5)
  - Bradycardia [Recovered/Resolved]
  - Cardiac arrest [Unknown]
  - Drug ineffective [Recovered/Resolved]
  - Hypotension [Recovered/Resolved]
  - Exposure during pregnancy [Unknown]

NARRATIVE: CASE EVENT DATE: 20220118
